FAERS Safety Report 25553964 (Version 1)
Quarter: 2025Q3

REPORT INFORMATION
  Report Type: Spontaneous
  Country: JP (occurrence: JP)
  Receive Date: 20250715
  Receipt Date: 20250715
  Transmission Date: 20251020
  Serious: Yes (Other)
  Sender: ALEXION PHARMACEUTICALS
  Company Number: JP-AstraZeneca-CH-00905991A

PATIENT
  Age: 46 Year
  Sex: Female

DRUGS (1)
  1. IMFINZI [Suspect]
     Active Substance: DURVALUMAB
     Indication: Non-small cell lung cancer
     Dosage: 1500 MILLIGRAM, QMONTH

REACTIONS (4)
  - Glucocorticoid deficiency [Recovered/Resolved]
  - Diarrhoea [Recovered/Resolved]
  - Blood corticotrophin decreased [Unknown]
  - Product dose omission issue [Unknown]
